FAERS Safety Report 4307400-9 (Version None)
Quarter: 2004Q1

REPORT INFORMATION
  Report Type: 
  Country: None (occurrence: None)
  Receive Date: 20040226
  Receipt Date: 20040219
  Transmission Date: 20041129
  Serious: Yes (Hospitalization)
  Sender: FDA-Public Use
  Company Number: 2004199884IL

PATIENT
  Age: 59 Year
  Sex: Male

DRUGS (1)
  1. CAMPTOSAR [Suspect]
     Indication: COLORECTAL CANCER STAGE III
     Dosage: 125 MG/M2, CYCLIC, IV
     Route: 042
     Dates: start: 20031101, end: 20040201

REACTIONS (1)
  - PNEUMONITIS [None]
